FAERS Safety Report 25012725 (Version 1)
Quarter: 2025Q1

REPORT INFORMATION
  Report Type: Spontaneous
  Country: FR (occurrence: FR)
  Receive Date: 20250226
  Receipt Date: 20250226
  Transmission Date: 20250409
  Serious: Yes (Hospitalization)
  Sender: AUROBINDO
  Company Number: FR-AFSSAPS-SE2025000152

PATIENT
  Age: 92 Year
  Sex: Female
  Weight: 37 kg

DRUGS (1)
  1. SOTALOL HYDROCHLORIDE [Suspect]
     Active Substance: SOTALOL HYDROCHLORIDE
     Indication: Supraventricular tachycardia
     Dosage: 160 MILLIGRAM, ONCE A DAY (2CP /J)
     Route: 048
     Dates: end: 20250129

REACTIONS (5)
  - Bradycardia [Recovered/Resolved]
  - Hypoglycaemia [Recovered/Resolved]
  - Confusional state [Recovered/Resolved]
  - Accidental overdose [Recovered/Resolved]
  - Unadjusted dose administered [Recovered/Resolved]

NARRATIVE: CASE EVENT DATE: 20250101
